FAERS Safety Report 7989203-7 (Version None)
Quarter: 2011Q4

REPORT INFORMATION
  Report Type: 
  Country: None (occurrence: None)
  Receive Date: 20111007
  Receipt Date: 20110818
  Transmission Date: 20120403
  Serious: No
  Sender: FDA-Public Use
  Company Number: 2011HGS-002405

PATIENT
  Age: 46 Year
  Sex: Female
  Weight: 109.3169 kg

DRUGS (7)
  1. BENLYSTA [Suspect]
     Indication: SYSTEMIC LUPUS ERYTHEMATOSUS
     Dosage: 10 MG/KG, 1 IN 1 M, INTRAVENOUS DRIP
     Route: 041
     Dates: start: 20110627, end: 20110627
  2. IMURAN [Concomitant]
  3. SOMA (CARISOPRODOL) (CARISOPRODOL) [Concomitant]
  4. CHANTIX (ANTI-SMOKING AGENTS) (VARENICLINE) [Concomitant]
  5. BENLYSTA [Suspect]
  6. SIMVASTATIN [Concomitant]
  7. HYDROCODONE/ACETAMINOPHEN (VICODIN) (PARACWETAMOL, HYDROCODONE BITARTR [Concomitant]

REACTIONS (7)
  - PAIN [None]
  - LOCAL SWELLING [None]
  - SWOLLEN TONGUE [None]
  - SWELLING FACE [None]
  - ERYTHEMA [None]
  - RASH [None]
  - AURICULAR SWELLING [None]
